FAERS Safety Report 17175300 (Version 1)
Quarter: 2019Q4

REPORT INFORMATION
  Report Type: Spontaneous
  Country: US (occurrence: US)
  Receive Date: 20191219
  Receipt Date: 20191219
  Transmission Date: 20200122
  Serious: Yes (Hospitalization)
  Sender: FDA-Public Use
  Company Number: US-ELI_LILLY_AND_COMPANY-US201912008292

PATIENT
  Age: 84 Year
  Sex: Male

DRUGS (4)
  1. HUMULIN N [Suspect]
     Active Substance: INSULIN HUMAN
     Dosage: 56 INTERNATIONAL UNIT, EACH EVENING
     Route: 058
     Dates: start: 2017
  2. HUMULIN N [Suspect]
     Active Substance: INSULIN HUMAN
     Indication: TYPE 2 DIABETES MELLITUS
     Dosage: 49 INTERNATIONAL UNIT, EACH MORNING
     Route: 058
     Dates: start: 2017
  3. HUMULIN N [Suspect]
     Active Substance: INSULIN HUMAN
     Dosage: 49 INTERNATIONAL UNIT, EACH MORNING
     Route: 058
  4. HUMULIN N [Suspect]
     Active Substance: INSULIN HUMAN
     Dosage: 56 INTERNATIONAL UNIT, EACH EVENING
     Route: 058

REACTIONS (3)
  - Blood glucose decreased [Recovered/Resolved]
  - Drug ineffective [Recovered/Resolved]
  - Blood glucose abnormal [Recovered/Resolved]

NARRATIVE: CASE EVENT DATE: 2019
